FAERS Safety Report 4286343-3 (Version None)
Quarter: 2004Q1

REPORT INFORMATION
  Report Type: 
  Country: None (occurrence: None)
  Receive Date: 20040121
  Receipt Date: 20030721
  Transmission Date: 20041129
  Serious: Yes (Other)
  Sender: FDA-Public Use
  Company Number: A03200301637

PATIENT
  Sex: Male

DRUGS (3)
  1. PLAVIX [Suspect]
     Dosage: ORAL
     Route: 048
  2. ASPIRIN ^BAYER^ - ACETYLSALICYLIC ACID - TABLET - 81 MG [Suspect]
     Dosage: 81 MG BID - ORAL
     Route: 048
  3. PANTOPRAZOLE SODIUM [Concomitant]

REACTIONS (3)
  - BLEEDING TIME PROLONGED [None]
  - GASTROINTESTINAL HAEMORRHAGE [None]
  - HAEMOGLOBIN DECREASED [None]
